FAERS Safety Report 5261258-2 (Version None)
Quarter: 2007Q1

REPORT INFORMATION
  Report Type: 
  Country: None (occurrence: None)
  Receive Date: 20070309
  Receipt Date: 20070228
  Transmission Date: 20070707
  Serious: Yes (Hospitalization, Other)
  Sender: FDA-Public Use
  Company Number: JP-PFIZER INC-2007016323

PATIENT
  Age: 38 Year
  Sex: Female

DRUGS (5)
  1. SOLANAX [Suspect]
     Route: 048
  2. LOPRESSOR [Suspect]
     Route: 048
  3. CIBENOL [Suspect]
     Route: 048
  4. TOLEDOMIN [Suspect]
     Route: 048
  5. DOGMATYL [Suspect]
     Route: 048

REACTIONS (8)
  - ABDOMINAL PAIN [None]
  - ATRIOVENTRICULAR BLOCK COMPLETE [None]
  - CARDIAC ARREST [None]
  - DEPRESSED LEVEL OF CONSCIOUSNESS [None]
  - DRUG TOXICITY [None]
  - MULTIPLE DRUG OVERDOSE INTENTIONAL [None]
  - SHOCK [None]
  - VOMITING [None]
